FAERS Safety Report 4710417-3 (Version None)
Quarter: 2005Q3

REPORT INFORMATION
  Report Type: 
  Country: None (occurrence: None)
  Receive Date: 20050707
  Receipt Date: 20050620
  Transmission Date: 20060218
  Serious: Yes (Life-Threatening, Hospitalization, Disabling, Other)
  Sender: FDA-Public Use
  Company Number: SGB1-2005-00213

PATIENT
  Age: 73 Year
  Sex: Female
  Weight: 47 kg

DRUGS (4)
  1. MIDODRINE (MIDODRINE)TABLET [Suspect]
     Indication: ORTHOSTATIC HYPOTENSION
     Dosage: 10 MG, 3X/DAY; TID
     Dates: start: 20000809, end: 20050101
  2. FLUDROCORTISONE ACETATE [Concomitant]
  3. RIVASTIGMINE TARTRATE [Concomitant]
  4. CARBAMAZEPINE [Concomitant]

REACTIONS (5)
  - BLOOD PRESSURE DIASTOLIC INCREASED [None]
  - CEREBROVASCULAR ACCIDENT [None]
  - DYSPHASIA [None]
  - LOSS OF CONSCIOUSNESS [None]
  - SYSTOLIC HYPERTENSION [None]
